FAERS Safety Report 9384586 (Version 2)
Quarter: 2013Q3

REPORT INFORMATION
  Report Type: Spontaneous
  Country: FR (occurrence: FR)
  Receive Date: 20130705
  Receipt Date: 20130827
  Transmission Date: 20140515
  Serious: Yes (Other)
  Sender: FDA-Public Use
  Company Number: FR-JNJFOC-20130700846

PATIENT
  Age: 40 Year
  Sex: Female

DRUGS (3)
  1. XEPLION [Suspect]
     Indication: SCHIZOPHRENIA
     Route: 030
  2. XEPLION [Suspect]
     Indication: SCHIZOPHRENIA
     Route: 030
  3. RISPERDAL [Suspect]
     Indication: PRODUCT USED FOR UNKNOWN INDICATION
     Route: 048

REACTIONS (4)
  - Cognitive disorder [Unknown]
  - Hallucination [Unknown]
  - Sluggishness [Unknown]
  - Regressive behaviour [Unknown]
